FAERS Safety Report 22897387 (Version 3)
Quarter: 2025Q1

REPORT INFORMATION
  Report Type: Spontaneous
  Country: US (occurrence: US)
  Receive Date: 20230902
  Receipt Date: 20250228
  Transmission Date: 20250408
  Serious: Yes (Other)
  Sender: TEVA
  Company Number: US-TEVA-2023-US-2923301

PATIENT
  Age: 39 Year
  Sex: Male

DRUGS (3)
  1. UZEDY [Suspect]
     Active Substance: RISPERIDONE
     Indication: Schizoaffective disorder
     Dosage: DOSAGE TEXT: 75 MG/Q1M
     Route: 065
  2. UZEDY [Suspect]
     Active Substance: RISPERIDONE
     Dosage: DOSAGE TEXT: 100 MG/Q1M
     Route: 065
  3. UZEDY [Suspect]
     Active Substance: RISPERIDONE
     Route: 065

REACTIONS (3)
  - Schizophrenia [Unknown]
  - Agitation [Unknown]
  - Mania [Unknown]
